FAERS Safety Report 9245420 (Version 1)
Quarter: 2013Q1

REPORT INFORMATION
  Report Type: Spontaneous
  Country: US (occurrence: None)
  Receive Date: 20130305
  Receipt Date: 20130305
  Transmission Date: 20140127
  Serious: Yes (Other)
  Sender: FDA-Public Use
  Company Number: 163-21880-12060070

PATIENT
  Sex: 0

DRUGS (2)
  1. REVLIMID [Suspect]
     Indication: B-CELL LYMPHOMA
     Dosage: 15 MG, CYCLE 1 , PO
     Route: 048
  2. RITUXIMAB [Suspect]
     Indication: B-CELL LYMPHOMA
     Dosage: 375 MG/M2 , WEEKLY X 4 , UNK
     Route: 048

REACTIONS (3)
  - Thrombosis [None]
  - Neutropenia [None]
  - Fatigue [None]
